FAERS Safety Report 18136268 (Version 3)
Quarter: 2021Q2

REPORT INFORMATION
  Report Type: Spontaneous
  Country: ES (occurrence: ES)
  Receive Date: 20200811
  Receipt Date: 20210416
  Transmission Date: 20210717
  Serious: Yes (Death, Life-Threatening, Hospitalization, Other)
  Sender: FDA-Public Use
  Company Number: ES-AMGEN-ESPSP2020126273

PATIENT

DRUGS (5)
  1. FLUDARABINE [Suspect]
     Active Substance: FLUDARABINE PHOSPHATE
     Indication: ACUTE MYELOID LEUKAEMIA
     Dosage: 40 MILLIGRAM/SQ. METER ON DAYS 2?6
     Route: 048
  2. FILGRASTIM [Suspect]
     Active Substance: FILGRASTIM
     Indication: ACUTE MYELOID LEUKAEMIA
     Dosage: 5 MICROGRAM/KILOGRAM ON DAYS 01 AND 03
     Route: 058
  3. FLUDARABINE [Suspect]
     Active Substance: FLUDARABINE PHOSPHATE
     Dosage: 25 MG/M^2 ON DAYS 2 TO 6 (DAYS 2?5 WHEN THEY WERE }75 YEARS OLD)
     Route: 042
  4. ARA?C [Suspect]
     Active Substance: CYTARABINE
     Indication: ACUTE MYELOID LEUKAEMIA
     Dosage: 75 MILLIGRAM/SQ. METER FOR 07DAYS
     Route: 058
  5. ARA?C [Suspect]
     Active Substance: CYTARABINE
     Dosage: 6 HOUR INTRAVENOUS PERFUSION
     Route: 042

REACTIONS (41)
  - Neutropenia [Unknown]
  - Confusional state [Unknown]
  - Thrombocytopenia [Unknown]
  - Pneumonia fungal [Unknown]
  - Adverse event [Fatal]
  - Embolism [Unknown]
  - Localised infection [Unknown]
  - Pain [Unknown]
  - Fungal sepsis [Unknown]
  - Bacterial sepsis [Unknown]
  - Haemorrhage [Fatal]
  - Tumour lysis syndrome [Unknown]
  - Toxic skin eruption [Unknown]
  - Unevaluable event [Unknown]
  - Drug ineffective [Unknown]
  - Systemic toxicity [Unknown]
  - Cardiotoxicity [Fatal]
  - Febrile neutropenia [Unknown]
  - Acute myeloid leukaemia [Fatal]
  - Pneumonia [Unknown]
  - Multiple organ dysfunction syndrome [Unknown]
  - Diarrhoea [Unknown]
  - Gastrointestinal haemorrhage [Unknown]
  - Neoplasm [Unknown]
  - General physical health deterioration [Unknown]
  - Infection [Fatal]
  - Nephropathy toxic [Unknown]
  - Hypotension [Unknown]
  - Sepsis [Unknown]
  - Pneumonia bacterial [Unknown]
  - Arthralgia [Unknown]
  - Oedema [Unknown]
  - Pyrexia [Unknown]
  - Pulmonary haemorrhage [Unknown]
  - Hepatotoxicity [Unknown]
  - Pulmonary toxicity [Unknown]
  - Cerebral haemorrhage [Unknown]
  - Pneumonia viral [Unknown]
  - Cachexia [Unknown]
  - Fracture [Unknown]
  - Laboratory test abnormal [Unknown]
